FAERS Safety Report 4864194-6 (Version None)
Quarter: 2005Q4

REPORT INFORMATION
  Report Type: 
  Country: None (occurrence: None)
  Receive Date: 20051222
  Receipt Date: 20050901
  Transmission Date: 20060501
  Serious: Yes (Hospitalization)
  Sender: FDA-Public Use
  Company Number: HQWYE263006SEP05

PATIENT
  Sex: Female

DRUGS (10)
  1. ENBREL [Suspect]
     Indication: RHEUMATOID ARTHRITIS
     Route: 058
     Dates: start: 20050519, end: 20050818
  2. PREDNISOLONE [Suspect]
     Route: 048
     Dates: start: 20050317
  3. VOLTAREN [Suspect]
     Route: 048
     Dates: end: 20050728
  4. VOLTAREN [Suspect]
     Route: 054
  5. TACROLIMUS [Concomitant]
     Route: 065
     Dates: start: 20050421, end: 20050602
  6. ISONIAZID [Concomitant]
     Dates: start: 20050106
  7. SULFAMETHOXAZOLE + TRIMETHOPRIM [Concomitant]
  8. EPINASTINE HYDROCHLORIDE [Concomitant]
  9. CORTICOSTEROID NOS [Concomitant]
     Route: 061
  10. CAMLEED [Concomitant]

REACTIONS (3)
  - GASTRIC ULCER [None]
  - PRURIGO [None]
  - PYLORIC STENOSIS [None]
